FAERS Safety Report 9525505 (Version 1)
Quarter: 2013Q1

REPORT INFORMATION
  Report Type: Spontaneous
  Country: US (occurrence: None)
  Receive Date: 20130305
  Receipt Date: 20130305
  Transmission Date: 20140127
  Serious: Yes (Disabling, Other)
  Sender: FDA-Public Use
  Company Number: 163-21880-12031017

PATIENT
  Age: 70 Year
  Sex: Male

DRUGS (10)
  1. REVLIMID [Suspect]
     Indication: PLASMA CELL MYELOMA
     Dosage: 25 MG, 1 IN 1 D, PO
     Route: 048
     Dates: start: 200811
  2. DECADRON (DEXAMETHASONE) [Concomitant]
  3. TOPROL (METOPROLOL SUCCINATE) [Concomitant]
  4. CARDURA (DOXAZOSIN MESILATE) [Concomitant]
  5. LUMIGAN (BIMATOPROST) [Concomitant]
  6. NIASPAN (NICOTINIC ACID) [Concomitant]
  7. HYDROCHLOROTHIAZIDE (HYDROCHLOROTHIAZIDE) [Concomitant]
  8. ACYCLOVIR (ACICLOVIR) (ACICLOVIR) [Concomitant]
  9. VELCADE (BORTEZOMIB) [Concomitant]
  10. ZOMETA (ZOLEDRONIC ACID) [Concomitant]

REACTIONS (1)
  - Plasma cell myeloma [None]
